FAERS Safety Report 16848748 (Version 3)
Quarter: 2019Q4

REPORT INFORMATION
  Report Type: Report from Study
  Country: None (occurrence: IT)
  Receive Date: 20190925
  Receipt Date: 20191003
  Transmission Date: 20200122
  Serious: Yes (Death, Other)
  Sender: FDA-Public Use
  Company Number: IT-ABBVIE-19K-083-2933649-00

PATIENT
  Age: 63 Year
  Sex: Male
  Weight: 75 kg

DRUGS (4)
  1. IMBRUVICA [Interacting]
     Active Substance: IBRUTINIB
     Indication: MANTLE CELL LYMPHOMA
     Route: 048
     Dates: start: 20190730, end: 20190913
  2. VENCLYXTO [Suspect]
     Active Substance: VENETOCLAX
     Indication: MANTLE CELL LYMPHOMA
     Dosage: RAMP UP PHASE
     Route: 048
     Dates: start: 20190902, end: 20190913
  3. IMBRUVICA [Interacting]
     Active Substance: IBRUTINIB
     Route: 048
     Dates: start: 20190919
  4. VENCLYXTO [Interacting]
     Active Substance: VENETOCLAX
     Route: 048
     Dates: start: 20190916, end: 20190925

REACTIONS (4)
  - Mantle cell lymphoma [Fatal]
  - Supraventricular tachycardia [Recovered/Resolved]
  - Off label use [Recovered/Resolved]
  - Drug interaction [Unknown]

NARRATIVE: CASE EVENT DATE: 2019
